FAERS Safety Report 6441229-0 (Version None)
Quarter: 2009Q4

REPORT INFORMATION
  Report Type: 
  Country: None (occurrence: None)
  Receive Date: 20091113
  Receipt Date: 20091113
  Transmission Date: 20100525
  Serious: No
  Sender: FDA-Public Use
  Company Number: None

PATIENT
  Age: 47 Year
  Sex: Female
  Weight: 98.8842 kg

DRUGS (1)
  1. LOVASTATIN [Suspect]
     Indication: BLOOD CHOLESTEROL
     Dosage: 40MG  1XDAILY PO
     Route: 048
     Dates: start: 20091028, end: 20091107

REACTIONS (3)
  - BURSITIS [None]
  - GAIT DISTURBANCE [None]
  - PAIN IN EXTREMITY [None]
